FAERS Safety Report 5949257-6 (Version None)
Quarter: 2008Q4

REPORT INFORMATION
  Report Type: 
  Country: None (occurrence: None)
  Receive Date: 20081021
  Receipt Date: 20070907
  Transmission Date: 20090506
  Serious: Yes (Other)
  Sender: FDA-Public Use
  Company Number: HQWYE622222NOV04

PATIENT
  Age: 68 Year
  Sex: Female

DRUGS (7)
  1. PREMARIN [Suspect]
     Indication: HORMONE REPLACEMENT THERAPY
     Dosage: ORAL
     Route: 048
     Dates: start: 19740101
  2. CYCRIN [Concomitant]
  3. ESTRACE [Suspect]
  4. MEDROXYPROGESTERONE [Suspect]
  5. PREMARIN [Suspect]
  6. PREMPRO [Suspect]
     Dates: start: 19900101
  7. PROVERA [Suspect]

REACTIONS (1)
  - BREAST CANCER [None]
